FAERS Safety Report 8990927 (Version 1)
Quarter: 2012Q4

REPORT INFORMATION
  Report Type: 
  Country: US (occurrence: US)
  Receive Date: 20121231
  Receipt Date: 20121231
  Transmission Date: 20130627
  Serious: No
  Sender: FDA-Public Use
  Company Number: US-BAYER-2012-127983

PATIENT
  Age: 62 Year
  Sex: Male

DRUGS (3)
  1. LEVITRA [Suspect]
     Indication: ERECTILE DYSFUNCTION NOS
     Dosage: 0.5 DF, ONCE
     Route: 048
     Dates: start: 20120312, end: 20120312
  2. LEVITRA [Suspect]
     Indication: ERECTILE DYSFUNCTION NOS
     Dosage: UNK
     Route: 048
     Dates: start: 20121125
  3. CHOLESTEROL- AND TRIGLYCERIDE REDUCERS [Concomitant]

REACTIONS (2)
  - Drug ineffective [None]
  - Headache [None]
